FAERS Safety Report 9071978 (Version 1)
Quarter: 2013Q1

REPORT INFORMATION
  Report Type: Report from Study
  Country: FR (occurrence: FR)
  Receive Date: 20130129
  Receipt Date: 20130129
  Transmission Date: 20140127
  Serious: Yes (Life-Threatening, Hospitalization, Other)
  Sender: FDA-Public Use
  Company Number: FR-ROCHE-772958

PATIENT
  Age: 71 None
  Sex: Male

DRUGS (15)
  1. RITUXIMAB [Suspect]
     Indication: B-CELL SMALL LYMPHOCYTIC LYMPHOMA
     Route: 041
     Dates: start: 20101027, end: 20101124
  2. RITUXIMAB [Suspect]
     Route: 041
     Dates: start: 20101124, end: 20101124
  3. FLUDARABINE [Suspect]
     Indication: B-CELL SMALL LYMPHOCYTIC LYMPHOMA
     Dosage: BUCCAL TABLET
     Route: 002
     Dates: start: 20101124, end: 20101126
  4. FLUDARABINE [Suspect]
     Route: 002
  5. CYCLOPHOSPHAMIDE [Suspect]
     Indication: B-CELL SMALL LYMPHOCYTIC LYMPHOMA
     Dosage: BUCCAL TABLET
     Route: 065
     Dates: start: 20101124, end: 20101126
  6. CYCLOPHOSPHAMIDE [Suspect]
     Route: 002
  7. INEXIUM [Concomitant]
     Route: 065
  8. VOGALENE [Concomitant]
     Route: 065
  9. KARDEGIC [Concomitant]
     Route: 065
  10. AMLODIPINE [Concomitant]
     Route: 065
  11. CO-TRIMOXAZOLE [Concomitant]
     Route: 065
  12. VALGANCICLOVIR [Concomitant]
     Route: 065
  13. BACTRIM FORTE [Concomitant]
     Route: 065
  14. ZELITREX [Concomitant]
     Route: 065
  15. OMEPRAZOLE [Concomitant]
     Route: 065

REACTIONS (3)
  - Haematuria [Recovering/Resolving]
  - Meningitis cryptococcal [Recovering/Resolving]
  - Basal cell carcinoma [Unknown]
